FAERS Safety Report 4290022-6 (Version None)
Quarter: 2004Q1

REPORT INFORMATION
  Report Type: 
  Country: None (occurrence: None)
  Receive Date: 20040209
  Receipt Date: 20040127
  Transmission Date: 20041129
  Serious: Yes (Other)
  Sender: FDA-Public Use
  Company Number: K200400096

PATIENT
  Sex: Female

DRUGS (1)
  1. NORDETTE-21 [Suspect]
     Dosage: ORAL
     Route: 048
     Dates: start: 20031001

REACTIONS (1)
  - HEARING IMPAIRED [None]
